FAERS Safety Report 11514849 (Version 2)
Quarter: 2016Q1

REPORT INFORMATION
  Report Type: Spontaneous
  Country: PL (occurrence: PL)
  Receive Date: 20150916
  Receipt Date: 20160211
  Transmission Date: 20160525
  Serious: Yes (Hospitalization)
  Sender: FDA-Public Use
  Company Number: PL-SA-2015SA139626

PATIENT
  Age: 55 Year
  Sex: Female
  Weight: 86 kg

DRUGS (9)
  1. ASPIRIN. [Suspect]
     Active Substance: ASPIRIN
     Route: 065
  2. IPP [Concomitant]
     Active Substance: PANTOPRAZOLE SODIUM
     Dosage: 20
     Dates: start: 20140926
  3. TORAMIDE [Concomitant]
     Dates: start: 20150210, end: 20150823
  4. ACARD [Concomitant]
     Active Substance: ASPIRIN
     Dates: start: 20140926
  5. AREPLEX [Suspect]
     Active Substance: CLOPIDOGREL BISULFATE
     Route: 065
  6. TELMIZEK [Concomitant]
     Dates: start: 20150210
  7. GLUCOPHAGE XR [Concomitant]
     Active Substance: METFORMIN HYDROCHLORIDE
     Dosage: 750
     Dates: start: 20140926
  8. KETONAL [Concomitant]
     Active Substance: KETOPROFEN
     Dates: start: 20150517, end: 20150602
  9. METOCARD ZK [Concomitant]
     Active Substance: METOPROLOL TARTRATE
     Dosage: 95
     Dates: start: 20140926

REACTIONS (1)
  - Chronic gastritis [Recovered/Resolved]

NARRATIVE: CASE EVENT DATE: 20150603
